FAERS Safety Report 15719996 (Version 1)
Quarter: 2018Q4

REPORT INFORMATION
  Report Type: Spontaneous
  Country: US (occurrence: US)
  Receive Date: 20181213
  Receipt Date: 20181213
  Transmission Date: 20190205
  Serious: Yes (Other)
  Sender: FDA-Public Use
  Company Number: US-ASTRAZENECA-2018SF60066

PATIENT
  Age: 67 Year
  Sex: Female

DRUGS (9)
  1. BRILINTA [Suspect]
     Active Substance: TICAGRELOR
     Indication: PRODUCT USE IN UNAPPROVED INDICATION
     Route: 048
  2. ENTYVIO [Suspect]
     Active Substance: VEDOLIZUMAB
     Indication: COLITIS ULCERATIVE
     Dosage: EIGHT WEEKS DOSE UNKNOWN
     Route: 042
     Dates: start: 20180629
  3. ENTYVIO [Suspect]
     Active Substance: VEDOLIZUMAB
     Indication: COLITIS ULCERATIVE
     Dosage: 300.0MG UNKNOWN
     Route: 042
     Dates: start: 20180727
  4. MESALAMINE. [Concomitant]
     Active Substance: MESALAMINE
     Dates: start: 201707
  5. PREDNISONE. [Suspect]
     Active Substance: PREDNISONE
     Dosage: 10.0MG UNKNOWN
     Route: 065
     Dates: start: 20180813, end: 20180909
  6. ENTYVIO [Suspect]
     Active Substance: VEDOLIZUMAB
     Indication: COLITIS ULCERATIVE
     Dosage: 300.0MG UNKNOWN
     Route: 042
     Dates: start: 20180323
  7. GLYCOPYRROLATE. [Concomitant]
     Active Substance: GLYCOPYRROLATE
     Dates: start: 201706
  8. PREDNISONE. [Suspect]
     Active Substance: PREDNISONE
     Dosage: 40.0MG UNKNOWN
     Route: 065
     Dates: start: 20160618
  9. LIALDA [Concomitant]
     Active Substance: MESALAMINE

REACTIONS (16)
  - Insomnia [Recovered/Resolved]
  - Off label use [Unknown]
  - Urine odour abnormal [Unknown]
  - Colitis ulcerative [Unknown]
  - Decreased appetite [Unknown]
  - Culture urine positive [Unknown]
  - Product use issue [Unknown]
  - Cataract [Unknown]
  - Skin ulcer [Unknown]
  - Nasopharyngitis [Unknown]
  - Fatigue [Not Recovered/Not Resolved]
  - Agitation [Recovered/Resolved]
  - Somnolence [Unknown]
  - Weight increased [Unknown]
  - Dyspnoea exertional [Not Recovered/Not Resolved]
  - Hunger [Recovered/Resolved]

NARRATIVE: CASE EVENT DATE: 2018
